FAERS Safety Report 4314101-X (Version None)
Quarter: 2004Q1

REPORT INFORMATION
  Report Type: 
  Country: None (occurrence: None)
  Receive Date: 20040308
  Receipt Date: 20040308
  Transmission Date: 20041129
  Serious: Yes (Death)
  Sender: FDA-Public Use
  Company Number: None

PATIENT
  Age: 83 Year
  Sex: Female
  Weight: 118 kg

DRUGS (4)
  1. ALTEPLASE GENENTEC [Suspect]
     Indication: CEREBROVASCULAR ACCIDENT
     Dosage: 90 MG ONCE INTRAVENOUS
     Route: 042
     Dates: start: 20040301, end: 20040301
  2. PROPRANOLOL [Concomitant]
  3. DILTIAZEM [Concomitant]
  4. LORAZEPAM [Concomitant]

REACTIONS (1)
  - CEREBRAL HAEMORRHAGE [None]
